FAERS Safety Report 8577562 (Version 3)
Quarter: 2012Q4

REPORT INFORMATION
  Report Type: 
  Country: US (occurrence: US)
  Receive Date: 20120524
  Receipt Date: 20121029
  Transmission Date: 20130627
  Serious: Yes (Hospitalization, Disabling, Other)
  Sender: FDA-Public Use
  Company Number: US-BAYER-2012-050400

PATIENT
  Age: 29 Year
  Sex: Female

DRUGS (2)
  1. YASMIN [Suspect]
     Indication: CONTRACEPTION
     Dosage: UNK
     Dates: start: 200108, end: 20051217
  2. ELAVIL [Concomitant]

REACTIONS (9)
  - Pulmonary embolism [None]
  - Deep vein thrombosis [Recovered/Resolved]
  - Major depression [None]
  - Bipolar disorder [None]
  - Injury [None]
  - Pain [None]
  - Deformity [Recovered/Resolved]
  - Anxiety [None]
  - Anhedonia [None]
